FAERS Safety Report 5365419-3 (Version None)
Quarter: 2007Q2

REPORT INFORMATION
  Report Type: 
  Country: None (occurrence: None)
  Receive Date: 20070621
  Receipt Date: 20070612
  Transmission Date: 20071010
  Serious: Yes (Life-Threatening, Hospitalization)
  Sender: FDA-Public Use
  Company Number: JP-ELI_LILLY_AND_COMPANY-JP_041004698

PATIENT
  Age: 68 Year
  Sex: Male

DRUGS (7)
  1. ZYPREXA [Suspect]
     Indication: MENTAL DISORDER
     Dosage: 10 MG, DAILY (1/D)
     Route: 048
     Dates: start: 20040518, end: 20040729
  2. DEPAKENE [Concomitant]
     Indication: DEPRESSION
     Dosage: 400 MG, DAILY (1/D)
     Route: 048
     Dates: start: 20040518, end: 20040729
  3. LIMAS [Concomitant]
     Indication: ANXIETY DISORDER
     Dosage: 400 MG, DAILY (1/D)
     Route: 048
     Dates: start: 20040621, end: 20040721
  4. FUROSEMIDE [Concomitant]
     Indication: RENAL IMPAIRMENT
     Dosage: 20 MG, DAILY (1/D)
     Route: 048
     Dates: start: 20040518, end: 20040729
  5. MAGNESIUM OXIDE [Concomitant]
     Indication: CONSTIPATION
     Dosage: 1.5 G, DAILY (1/D)
     Route: 048
     Dates: start: 20040518, end: 20040729
  6. LENDORMIN [Concomitant]
     Indication: INSOMNIA
     Dosage: 2 UNK, DAILY (1/D)
     Route: 048
     Dates: start: 20040518, end: 20040729
  7. MUCODYNE [Concomitant]
     Dosage: 3 UNK, DAILY (1/D)
     Route: 048
     Dates: start: 20040518, end: 20040729

REACTIONS (3)
  - CYTOMEGALOVIRUS INFECTION [None]
  - DRUG RASH WITH EOSINOPHILIA AND SYSTEMIC SYMPTOMS [None]
  - PHOTOSENSITIVITY REACTION [None]
